FAERS Safety Report 6600699-5 (Version None)
Quarter: 2010Q1

REPORT INFORMATION
  Report Type: 
  Country: None (occurrence: None)
  Receive Date: 20100223
  Receipt Date: 20100223
  Transmission Date: 20100710
  Serious: Yes (Hospitalization, Other)
  Sender: FDA-Public Use
  Company Number: None

PATIENT
  Age: 54 Year
  Sex: Male
  Weight: 80.7403 kg

DRUGS (2)
  1. LEVAQUIN [Suspect]
     Indication: BRONCHITIS
     Dosage: 750 MG DAILY PO
     Route: 048
     Dates: start: 20100113, end: 20100114
  2. LEVAQUIN [Suspect]
     Indication: SINUSITIS
     Dosage: 750 MG DAILY PO
     Route: 048
     Dates: start: 20100113, end: 20100114

REACTIONS (13)
  - ANAEMIA [None]
  - CONFUSIONAL STATE [None]
  - DEPERSONALISATION [None]
  - DIZZINESS [None]
  - GRAND MAL CONVULSION [None]
  - HEADACHE [None]
  - HYPERHIDROSIS [None]
  - HYPOAESTHESIA [None]
  - INSOMNIA [None]
  - MUSCULOSKELETAL PAIN [None]
  - NERVOUSNESS [None]
  - PALPITATIONS [None]
  - PARANOIA [None]
